FAERS Safety Report 21113962 (Version 1)
Quarter: 2022Q3

REPORT INFORMATION
  Report Type: Spontaneous
  Country: US (occurrence: None)
  Receive Date: 20220721
  Receipt Date: 20220721
  Transmission Date: 20221027
  Serious: No
  Sender: FDA-Public Use
  Company Number: None

PATIENT

DRUGS (2)
  1. ANTICOAGULANT CITRATE DEXTROSE A [Suspect]
     Active Substance: ANHYDROUS CITRIC ACID\DEXTROSE MONOHYDRATE\TRISODIUM CITRATE DIHYDRATE
     Dosage: OTHER ROUTE : IV BAG;?
     Route: 050
  2. CARDIOPLEGIC SOLUTION [Suspect]
     Active Substance: CALCIUM CHLORIDE\MAGNESIUM CHLORIDE\POTASSIUM CHLORIDE\SODIUM CHLORIDE
     Dosage: OTHER ROUTE : IV BAG;?
     Route: 050

REACTIONS (2)
  - Product packaging confusion [None]
  - Intercepted product selection error [None]
